FAERS Safety Report 7078168-0 (Version None)
Quarter: 2010Q4

REPORT INFORMATION
  Report Type: 
  Country: None (occurrence: None)
  Receive Date: 20101101
  Receipt Date: 20101101
  Transmission Date: 20110411
  Serious: Yes (Hospitalization)
  Sender: FDA-Public Use
  Company Number: None

PATIENT
  Sex: Female
  Weight: 87.6 kg

DRUGS (4)
  1. RITUXIMAB (MOAB C2B8 ANTI CD20, CHIMERIC) [Suspect]
     Dosage: 750 MG
  2. CYCLOPHOSPHAMIDE [Suspect]
     Dosage: 1200 MG
  3. PENTOSTATIN [Suspect]
     Dosage: 8 MG
  4. PEGFILGRASTIM [Concomitant]

REACTIONS (11)
  - ATELECTASIS [None]
  - CAPILLARY LEAK SYNDROME [None]
  - CHEST DISCOMFORT [None]
  - CHILLS [None]
  - DYSPNOEA [None]
  - HYPOTENSION [None]
  - HYPOXIA [None]
  - NAUSEA [None]
  - ORTHOPNOEA [None]
  - THROAT TIGHTNESS [None]
  - WHEEZING [None]
